FAERS Safety Report 24304638 (Version 4)
Quarter: 2024Q4

REPORT INFORMATION
  Report Type: Report from Study
  Country: US (occurrence: US)
  Receive Date: 20240910
  Receipt Date: 20241111
  Transmission Date: 20250115
  Serious: Yes (Death, Hospitalization, Other)
  Sender: TAKEDA
  Company Number: US-TAKEDA-2023TUS054341

PATIENT
  Age: 57 Year
  Sex: Female

DRUGS (13)
  1. TEDUGLUTIDE [Suspect]
     Active Substance: TEDUGLUTIDE
     Indication: Short-bowel syndrome
     Dosage: 3.1 MILLIGRAM, QD
     Dates: start: 20130906, end: 20140226
  2. TEDUGLUTIDE [Suspect]
     Active Substance: TEDUGLUTIDE
     Dosage: 3.1 MILLIGRAM, QD
     Dates: start: 20140929, end: 20190321
  3. TEDUGLUTIDE [Suspect]
     Active Substance: TEDUGLUTIDE
     Dosage: 3.5 MILLIGRAM, QD
     Dates: start: 20190321, end: 20190408
  4. TEDUGLUTIDE [Suspect]
     Active Substance: TEDUGLUTIDE
     Dosage: 4.2 MILLIGRAM, QD
     Dates: start: 20190408, end: 20210108
  5. TEDUGLUTIDE [Suspect]
     Active Substance: TEDUGLUTIDE
     Dosage: 2.7 MILLIGRAM, QD
     Dates: start: 20210108, end: 20220528
  6. TEDUGLUTIDE [Suspect]
     Active Substance: TEDUGLUTIDE
     Dosage: 2.59 MILLIGRAM, QD
     Dates: start: 20210628, end: 202205
  7. TEDUGLUTIDE [Suspect]
     Active Substance: TEDUGLUTIDE
     Dosage: 2.59 MILLIGRAM, QD
     Dates: start: 20220516, end: 20221214
  8. TEDUGLUTIDE [Suspect]
     Active Substance: TEDUGLUTIDE
     Dosage: 1.3 MILLIGRAM, QD
     Dates: start: 20221214, end: 20221220
  9. SODIUM CHLORIDE [Concomitant]
     Active Substance: SODIUM CHLORIDE
     Indication: Pancreatitis
     Dosage: 150 MILLILITER, Q1HR
     Dates: start: 20220617, end: 20220618
  10. ONDANSETRON [Concomitant]
     Active Substance: ONDANSETRON
     Indication: Pancreatitis
     Dosage: 4 MILLIGRAM, SINGLE
     Dates: start: 20220618, end: 20220618
  11. METOCLOPRAMIDE [Concomitant]
     Active Substance: METOCLOPRAMIDE
     Indication: Pancreatitis
     Dosage: 10 MILLIGRAM, SINGLE
     Dates: start: 20220617, end: 20220617
  12. ANCEF [Concomitant]
     Active Substance: CEFAZOLIN SODIUM
     Indication: Bacteraemia
     Dosage: 2 GRAM, TID
     Dates: start: 20221029, end: 20221125
  13. DAPTOMYCIN [Concomitant]
     Active Substance: DAPTOMYCIN
     Indication: Bacteraemia
     Dosage: 550 MILLIGRAM, QD
     Dates: start: 20220824, end: 20221008

REACTIONS (5)
  - Osteomyelitis [Fatal]
  - Vascular device infection [Recovered/Resolved]
  - Complication associated with device [Recovered/Resolved]
  - Vitamin D deficiency [Recovered/Resolved]
  - Laryngitis [Recovered/Resolved]

NARRATIVE: CASE EVENT DATE: 20220816
